FAERS Safety Report 7395619-2 (Version None)
Quarter: 2011Q2

REPORT INFORMATION
  Report Type: 
  Country: None (occurrence: None)
  Receive Date: 20110405
  Receipt Date: 20090928
  Transmission Date: 20111010
  Serious: Yes (Other)
  Sender: FDA-Public Use
  Company Number: PHHY2009DE67787

PATIENT
  Sex: Female

DRUGS (1)
  1. EXTAVIA [Suspect]
     Indication: MULTIPLE SCLEROSIS
     Dosage: 250 UG/ML, UNK
     Route: 058
     Dates: start: 20090706

REACTIONS (17)
  - MULTIPLE SCLEROSIS RELAPSE [None]
  - ACTIVITIES OF DAILY LIVING IMPAIRED [None]
  - MUSCLE SPASMS [None]
  - MEMORY IMPAIRMENT [None]
  - INADEQUATE DIET [None]
  - CARDIOVASCULAR DISORDER [None]
  - HAEMATOMA [None]
  - WEIGHT DECREASED [None]
  - NASOPHARYNGITIS [None]
  - VIITH NERVE PARALYSIS [None]
  - COUGH [None]
  - INJECTION SITE ERYTHEMA [None]
  - INJECTION SITE IRRITATION [None]
  - IMPATIENCE [None]
  - ROAD TRAFFIC ACCIDENT [None]
  - FALL [None]
  - MOTOR DYSFUNCTION [None]
